FAERS Safety Report 8240598-9 (Version None)
Quarter: 2012Q1

REPORT INFORMATION
  Report Type: 
  Country: None (occurrence: None)
  Receive Date: 20120328
  Receipt Date: 20120313
  Transmission Date: 20120608
  Serious: Yes (Hospitalization)
  Sender: FDA-Public Use
  Company Number: US-ROCHE-1043885

PATIENT
  Sex: Female
  Weight: 90.346 kg

DRUGS (1)
  1. XELODA [Suspect]
     Indication: BREAST CANCER METASTATIC
     Route: 048
     Dates: start: 20120131

REACTIONS (11)
  - BACK PAIN [None]
  - ASTHENIA [None]
  - HYPERHIDROSIS [None]
  - CHEST PAIN [None]
  - DISORIENTATION [None]
  - HYPOTENSION [None]
  - CARDIAC DISORDER [None]
  - PAIN [None]
  - RETCHING [None]
  - URTICARIA [None]
  - COUGH [None]
